FAERS Safety Report 10502433 (Version 4)
Quarter: 2014Q4

REPORT INFORMATION
  Report Type: Report from Study
  Country: US (occurrence: NL)
  Receive Date: 20141007
  Receipt Date: 20141108
  Transmission Date: 20150528
  Serious: Yes (Death, Hospitalization)
  Sender: FDA-Public Use
  Company Number: NL-CELGENE-NLD-2014094533

PATIENT
  Age: 79 Year
  Sex: Male

DRUGS (7)
  1. METOPROLOL [Concomitant]
     Active Substance: METOPROLOL
     Indication: ARRHYTHMIA
     Route: 065
     Dates: start: 20140703, end: 20140926
  2. MELPHALAN [Suspect]
     Active Substance: MELPHALAN
     Indication: PLASMA CELL MYELOMA
     Route: 065
  3. FAMCICLOVIR. [Concomitant]
     Active Substance: FAMCICLOVIR
     Indication: HERPES VIRUS INFECTION
     Route: 065
     Dates: start: 20130920, end: 20140926
  4. ACENOCOUMAROL [Concomitant]
     Active Substance: ACENOCOUMAROL
     Indication: ARRHYTHMIA
     Route: 065
     Dates: start: 20131015, end: 20140923
  5. MOVICOLON [Concomitant]
     Active Substance: POLYETHYLENE GLYCOL 3350\POTASSIUM CHLORIDE\SODIUM BICARBONATE\SODIUM CHLORIDE
     Indication: CONSTIPATION
     Dosage: SATCHET
     Route: 065
     Dates: start: 20140920, end: 20140920
  6. PREDNISONE. [Suspect]
     Active Substance: PREDNISONE
     Indication: PLASMA CELL MYELOMA
     Route: 065
  7. REVLIMID [Suspect]
     Active Substance: LENALIDOMIDE
     Indication: PLASMA CELL MYELOMA
     Dosage: 5 MILLIGRAM
     Route: 048
     Dates: start: 20120815, end: 20140919

REACTIONS (1)
  - Intestinal adenocarcinoma [Fatal]

NARRATIVE: CASE EVENT DATE: 20140920
